FAERS Safety Report 6869411-9 (Version None)
Quarter: 2010Q3

REPORT INFORMATION
  Report Type: 
  Country: None (occurrence: None)
  Receive Date: 20100722
  Receipt Date: 20080730
  Transmission Date: 20110219
  Serious: No
  Sender: FDA-Public Use
  Company Number: US-PFIZER INC-2008063327

PATIENT
  Sex: Female

DRUGS (2)
  1. CHANTIX [Suspect]
  2. SEROQUEL [Concomitant]

REACTIONS (1)
  - AGITATION [None]
